FAERS Safety Report 9562548 (Version 1)
Quarter: 2013Q3

REPORT INFORMATION
  Report Type: Spontaneous
  Country: AU (occurrence: AU)
  Receive Date: 20130927
  Receipt Date: 20130927
  Transmission Date: 20140515
  Serious: Yes (Life-Threatening, Other)
  Sender: FDA-Public Use
  Company Number: AU-B.I. PHARMACEUTICALS,INC./RIDGEFIELD-2013-RO-01573RO

PATIENT
  Age: 72 Year
  Sex: Female

DRUGS (6)
  1. LITHIUM CARBONATE [Suspect]
     Indication: SCHIZOAFFECTIVE DISORDER
     Dates: start: 1993, end: 2005
  2. TELMISARTAN + HYDROCHLOROTHIAZIDE [Suspect]
  3. ARIPIPRAZOLE [Suspect]
     Dosage: 10 MG
  4. SODIUM VALPROATE [Suspect]
     Dosage: 1000 MG
  5. ATORVASTATIN [Suspect]
     Dosage: 20 MG
  6. THYROXIN [Suspect]
     Dosage: 50 MCG

REACTIONS (7)
  - Renal cell carcinoma [Recovered/Resolved]
  - Toxicity to various agents [Unknown]
  - Renal cyst [Unknown]
  - Type 2 diabetes mellitus [Unknown]
  - Renal failure chronic [Unknown]
  - Tubulointerstitial nephritis [Unknown]
  - Hypertension [Unknown]
